FAERS Safety Report 5009509-3 (Version None)
Quarter: 2006Q2

REPORT INFORMATION
  Report Type: 
  Country: None (occurrence: None)
  Receive Date: 20060522
  Receipt Date: 20060508
  Transmission Date: 20061013
  Serious: Yes (Hospitalization)
  Sender: FDA-Public Use
  Company Number: 2006061755

PATIENT

DRUGS (2)
  1. DETROL LA [Suspect]
     Indication: ILL-DEFINED DISORDER
     Dosage: (2 MG)
  2. DEPAKOTE [Suspect]
     Indication: ILL-DEFINED DISORDER

REACTIONS (1)
  - ANTICONVULSANT DRUG LEVEL INCREASED [None]
